FAERS Safety Report 7572087-9 (Version None)
Quarter: 2011Q2

REPORT INFORMATION
  Report Type: 
  Country: None (occurrence: None)
  Receive Date: 20110624
  Receipt Date: 20110423
  Transmission Date: 20111010
  Serious: Yes (Other)
  Sender: FDA-Public Use
  Company Number: CHPA2011CA08338

PATIENT
  Age: 48 Year
  Sex: Female

DRUGS (1)
  1. EXCEDRIN EXTRA STRENGTH - CA [Suspect]
     Indication: HEADACHE
     Dosage: 2 DF, ONCE/SINGLE
     Route: 048
     Dates: start: 20110423, end: 20110423

REACTIONS (3)
  - INCORRECT DOSE ADMINISTERED [None]
  - HEART RATE INCREASED [None]
  - PALPITATIONS [None]
